FAERS Safety Report 10753947 (Version 1)
Quarter: 2015Q1

REPORT INFORMATION
  Report Type: Report from Study
  Country: BR (occurrence: BR)
  Receive Date: 20150202
  Receipt Date: 20150202
  Transmission Date: 20150721
  Serious: Yes (Hospitalization, Other)
  Sender: FDA-Public Use
  Company Number: BR-ROCHE-1528697

PATIENT
  Sex: Female
  Weight: 67 kg

DRUGS (12)
  1. OMEPRAZOLE. [Concomitant]
     Active Substance: OMEPRAZOLE
  2. RIVOTRIL [Concomitant]
     Active Substance: CLONAZEPAM
     Route: 065
  3. CODEINE [Concomitant]
     Active Substance: CODEINE
  4. SIMVASTATIN. [Concomitant]
     Active Substance: SIMVASTATIN
  5. ATENOLOL. [Concomitant]
     Active Substance: ATENOLOL
  6. AAS INFANTIL [Concomitant]
     Active Substance: ASPIRIN
  7. ACTEMRA [Suspect]
     Active Substance: TOCILIZUMAB
     Indication: RHEUMATOID ARTHRITIS
     Dosage: INFUSION INTERRUPTED.
     Route: 042
     Dates: start: 201402
  8. HYDROCHLOROTHIAZIDE. [Concomitant]
     Active Substance: HYDROCHLOROTHIAZIDE
  9. MIRTAX [Concomitant]
     Indication: PAIN
  10. PARACETAMOL [Concomitant]
     Active Substance: ACETAMINOPHEN
     Indication: PAIN
  11. PAROXETINE [Concomitant]
     Active Substance: PAROXETINE\PAROXETINE HYDROCHLORIDE
  12. DIPYRONE [Concomitant]
     Active Substance: DIPYRONE
     Indication: PAIN

REACTIONS (10)
  - Diarrhoea [Recovering/Resolving]
  - Uveitis [Recovering/Resolving]
  - Infection [Recovering/Resolving]
  - Nausea [Recovering/Resolving]
  - Lactose intolerance [Recovering/Resolving]
  - Immunodeficiency [Recovering/Resolving]
  - Coeliac disease [Recovering/Resolving]
  - Blood cholesterol increased [Recovering/Resolving]
  - Herpes zoster [Recovering/Resolving]
  - Cataract [Recovering/Resolving]
